FAERS Safety Report 21348500 (Version 2)
Quarter: 2022Q4

REPORT INFORMATION
  Report Type: Spontaneous
  Country: JP (occurrence: None)
  Receive Date: 20220919
  Receipt Date: 20221014
  Transmission Date: 20230112
  Serious: Yes (Hospitalization, Other)
  Sender: FDA-Public Use
  Company Number: JP-Orion Corporation ORION PHARMA-ENTC2022-0181

PATIENT
  Age: 86 Year
  Sex: Female

DRUGS (1)
  1. STALEVO [Suspect]
     Active Substance: CARBIDOPA\ENTACAPONE\LEVODOPA
     Indication: Parkinson^s disease
     Dosage: LEVODOPA UNKNOWN-CARBIDOPA UNKNOWN-ENTACAPONE 100MG
     Route: 048

REACTIONS (3)
  - Sudden onset of sleep [Unknown]
  - Decreased appetite [Unknown]
  - Somnolence [Unknown]
